FAERS Safety Report 7724934-5 (Version None)
Quarter: 2011Q3

REPORT INFORMATION
  Report Type: 
  Country: None (occurrence: None)
  Receive Date: 20110901
  Receipt Date: 20110824
  Transmission Date: 20111222
  Serious: Yes (Hospitalization)
  Sender: FDA-Public Use
  Company Number: CH-BAXTER-2011BH027561

PATIENT
  Age: 5 Year
  Sex: Female
  Weight: 14 kg

DRUGS (12)
  1. ASPARAGINASE [Suspect]
     Indication: ACUTE LYMPHOCYTIC LEUKAEMIA
     Route: 041
     Dates: start: 20101109, end: 20110603
  2. DEXAMETHASONE [Concomitant]
     Indication: ACUTE LYMPHOCYTIC LEUKAEMIA
     Route: 041
  3. THIOGUANINE [Suspect]
     Indication: ACUTE LYMPHOCYTIC LEUKAEMIA
     Route: 041
     Dates: start: 20110131, end: 20110705
  4. VINCRISTINE [Suspect]
     Indication: ACUTE LYMPHOCYTIC LEUKAEMIA
     Route: 040
     Dates: start: 20100629, end: 20110706
  5. DOXORUBICIN HCL [Suspect]
     Indication: ACUTE LYMPHOCYTIC LEUKAEMIA
     Route: 041
     Dates: start: 20110103, end: 20110603
  6. METHOTREXATE [Suspect]
     Indication: ACUTE LYMPHOCYTIC LEUKAEMIA
     Route: 029
     Dates: start: 20100101, end: 20110629
  7. BACTRIM [Concomitant]
     Indication: PROPHYLACTIC CHEMOTHERAPY
     Route: 048
  8. ACETAMINOPHEN [Concomitant]
     Indication: PYREXIA
     Route: 048
  9. CLEMASTINE FUMARATE [Concomitant]
     Indication: PROPHYLACTIC CHEMOTHERAPY
     Route: 040
     Dates: start: 20110706, end: 20110712
  10. CYCLOKAPRON [Concomitant]
     Indication: HERPES VIRUS INFECTION
     Route: 048
     Dates: start: 20110708, end: 20110709
  11. CYCLOPHOSPHAMIDE [Suspect]
     Indication: ACUTE LYMPHOCYTIC LEUKAEMIA
     Route: 041
     Dates: start: 20100827, end: 20110622
  12. CYTARABINE [Suspect]
     Indication: ACUTE LYMPHOCYTIC LEUKAEMIA
     Route: 041
     Dates: start: 20100827, end: 20110703

REACTIONS (6)
  - PYREXIA [None]
  - VENOOCCLUSIVE LIVER DISEASE [None]
  - LIVER INJURY [None]
  - AGRANULOCYTOSIS [None]
  - ANAEMIA [None]
  - THROMBOCYTOPENIA [None]
